FAERS Safety Report 18906742 (Version 2)
Quarter: 2022Q1

REPORT INFORMATION
  Report Type: Spontaneous
  Country: US (occurrence: US)
  Receive Date: 20210217
  Receipt Date: 20220304
  Transmission Date: 20220423
  Serious: No
  Sender: FDA-Public Use
  Company Number: US-PFIZER INC-2021121917

PATIENT
  Age: 74 Year
  Sex: Male

DRUGS (1)
  1. BRAFTOVI [Suspect]
     Active Substance: ENCORAFENIB
     Dosage: 75 MG

REACTIONS (3)
  - Product dose omission issue [Unknown]
  - Joint swelling [Unknown]
  - Peripheral swelling [Unknown]
